FAERS Safety Report 8614427-5 (Version None)
Quarter: 2012Q3

REPORT INFORMATION
  Report Type: 
  Country: None (occurrence: None)
  Receive Date: 20120823
  Receipt Date: 20120814
  Transmission Date: 20120928
  Serious: Yes (Other)
  Sender: FDA-Public Use
  Company Number: CA-JNJFOC-20120806791

PATIENT
  Sex: Male
  Weight: 76 kg

DRUGS (2)
  1. REMICADE [Suspect]
     Indication: PSORIASIS
     Route: 042
     Dates: start: 20110501
  2. REMICADE [Suspect]
     Route: 042
     Dates: start: 20120814

REACTIONS (3)
  - INFUSION RELATED REACTION [None]
  - HYPERTENSION [None]
  - HEART RATE INCREASED [None]
